FAERS Safety Report 5123854-2 (Version None)
Quarter: 2006Q4

REPORT INFORMATION
  Report Type: 
  Country: None (occurrence: None)
  Receive Date: 20061010
  Receipt Date: 20060928
  Transmission Date: 20070319
  Serious: Yes (Death)
  Sender: FDA-Public Use
  Company Number: FR-GLAXOSMITHKLINE-B0440429A

PATIENT
  Age: 40 Year
  Sex: Female

DRUGS (6)
  1. IMUREL [Suspect]
     Indication: PROPHYLAXIS AGAINST TRANSPLANT REJECTION
     Route: 048
     Dates: start: 20060701, end: 20060716
  2. WELLVONE [Suspect]
     Route: 048
     Dates: start: 20060717, end: 20060724
  3. BACTRIM [Suspect]
     Route: 065
     Dates: start: 20060714, end: 20060717
  4. CYMEVAN [Suspect]
     Route: 042
     Dates: start: 20060718, end: 20060719
  5. PROGRAF [Suspect]
     Route: 065
     Dates: start: 20060714, end: 20060720
  6. XIGRIS [Suspect]
     Route: 042
     Dates: start: 20060717, end: 20060719

REACTIONS (15)
  - BLOOD CREATINE PHOSPHOKINASE INCREASED [None]
  - BLOOD LACTATE DEHYDROGENASE INCREASED [None]
  - BRADYCARDIA [None]
  - COUGH [None]
  - CYTOMEGALOVIRUS INFECTION [None]
  - DYSPNOEA [None]
  - HYPERKALAEMIA [None]
  - HYPOXIA [None]
  - MULTI-ORGAN FAILURE [None]
  - PNEUMOCYSTIS JIROVECI PNEUMONIA [None]
  - PYREXIA [None]
  - RHABDOMYOLYSIS [None]
  - TACHYCARDIA [None]
  - TACHYPNOEA [None]
  - VENTRICULAR ARRHYTHMIA [None]
